FAERS Safety Report 9191266 (Version 1)
Quarter: 2013Q1

REPORT INFORMATION
  Report Type: Spontaneous
  Country: CZ (occurrence: CZ)
  Receive Date: 20130326
  Receipt Date: 20130326
  Transmission Date: 20140127
  Serious: Yes (Other)
  Sender: FDA-Public Use
  Company Number: CZ-ACTAVIS-2013-04949

PATIENT
  Age: 72 Year
  Sex: Female
  Weight: 77 kg

DRUGS (5)
  1. VANCOMYCIN HYDROCHLORIDE [Suspect]
     Indication: ENDOCARDITIS BACTERIAL
     Dosage: 1 G, BID
     Route: 041
     Dates: start: 20100105
  2. VANCOMYCIN HYDROCHLORIDE [Interacting]
     Dosage: 1 G, Q24H
     Route: 041
     Dates: start: 20100108
  3. FUROSEMIDE [Interacting]
     Indication: BLOOD PRESSURE INCREASED
     Dosage: 40 MG, SINGLE
     Route: 040
  4. FUROSEMIDE [Interacting]
     Indication: WEIGHT INCREASED
     Dosage: 20 MG, DAILY
  5. PENICILLIN [Concomitant]
     Indication: ENDOCARDITIS BACTERIAL
     Dosage: 5 MILLION IU, Q6H
     Route: 042

REACTIONS (2)
  - Renal impairment [Not Recovered/Not Resolved]
  - Potentiating drug interaction [Unknown]
